FAERS Safety Report 5721445-3 (Version None)
Quarter: 2008Q2

REPORT INFORMATION
  Report Type: 
  Country: None (occurrence: None)
  Receive Date: 20080429
  Receipt Date: 20080424
  Transmission Date: 20081010
  Serious: Yes (Disabling)
  Sender: FDA-Public Use
  Company Number: JP-ASTRAZENECA-2008AP03134

PATIENT
  Age: 52 Year
  Sex: Male

DRUGS (1)
  1. ANAPEINE INJECTION [Suspect]
     Indication: SEDATION
     Route: 065
     Dates: start: 20080401, end: 20080401

REACTIONS (2)
  - DYSAESTHESIA [None]
  - MOVEMENT DISORDER [None]
